FAERS Safety Report 4672681-9 (Version None)
Quarter: 2005Q2

REPORT INFORMATION
  Report Type: 
  Country: None (occurrence: None)
  Receive Date: 20050524
  Receipt Date: 20050512
  Transmission Date: 20051028
  Serious: Yes (Hospitalization)
  Sender: FDA-Public Use
  Company Number: FR-BRISTOL-MYERS SQUIBB COMPANY-12968129

PATIENT
  Age: 31 Year
  Sex: Female

DRUGS (4)
  1. MUCOMYST [Suspect]
     Dates: end: 20050321
  2. APRANAX [Suspect]
     Dates: end: 20050321
  3. DIOALGO [Suspect]
     Dates: end: 20050321
  4. RHINOFLUIMUCIL [Suspect]
     Dates: end: 20050321

REACTIONS (2)
  - ANGIONEUROTIC OEDEMA [None]
  - URTICARIA [None]
